FAERS Safety Report 7812276-9 (Version None)
Quarter: 2011Q4

REPORT INFORMATION
  Report Type: 
  Country: None (occurrence: None)
  Receive Date: 20111013
  Receipt Date: 20111011
  Transmission Date: 20120403
  Serious: No
  Sender: FDA-Public Use
  Company Number: US-B.I. PHARMACEUTICALS,INC./RIDGEFIELD-2011-BP-21672BP

PATIENT
  Sex: Female

DRUGS (17)
  1. PRADAXA [Suspect]
     Indication: ATRIAL FIBRILLATION
     Dosage: 300 MG
     Route: 048
     Dates: start: 20110901
  2. DIOVAN [Concomitant]
     Dosage: 40 MG
  3. PROBENECID [Concomitant]
     Dosage: 500 MG
  4. TRAMADOL HCL [Concomitant]
  5. CALCIUM CARBONATE [Concomitant]
  6. HORSE CHESTNUT [Concomitant]
     Dosage: 600 MG
  7. CENTRUM SILVER [Concomitant]
  8. CRANBERRY CAPSULES [Concomitant]
     Dosage: 680 MG
  9. METFORMIN HYDROCHLORIDE [Concomitant]
  10. OXYGEN [Concomitant]
  11. STOOL SOFTENER [Concomitant]
  12. EXTRA STRENGTH TYLENOL [Concomitant]
  13. FORADIL [Concomitant]
  14. LEVOXYL [Concomitant]
     Dosage: 0.088 MG
  15. METAMUCIL-2 [Concomitant]
  16. LASIX [Concomitant]
     Dosage: 20 MG
  17. BISOPROLOL [Concomitant]
     Dosage: 5 MG

REACTIONS (3)
  - REGURGITATION [None]
  - SENSATION OF FOREIGN BODY [None]
  - DYSPEPSIA [None]
